FAERS Safety Report 4900424-X (Version None)
Quarter: 2006Q1

REPORT INFORMATION
  Report Type: 
  Country: None (occurrence: None)
  Receive Date: 20060203
  Receipt Date: 20060120
  Transmission Date: 20060701
  Serious: Yes (Hospitalization)
  Sender: FDA-Public Use
  Company Number: FR-JNJFOC-20060105937

PATIENT
  Age: 81 Year
  Sex: Male

DRUGS (12)
  1. IXPRIM [Suspect]
     Indication: DRUG USE FOR UNKNOWN INDICATION
     Route: 048
     Dates: start: 20050415, end: 20051013
  2. TERCIAN [Suspect]
     Indication: DRUG USE FOR UNKNOWN INDICATION
     Route: 048
     Dates: start: 20050516, end: 20051013
  3. FLUVOXAMINE MALEATE [Suspect]
     Indication: DRUG USE FOR UNKNOWN INDICATION
     Route: 048
     Dates: start: 20050516, end: 20051013
  4. FONZYLANE [Concomitant]
     Route: 048
  5. NOOTROPYL [Concomitant]
     Route: 048
     Dates: start: 20050115, end: 20051013
  6. DOMPERIDONE [Concomitant]
     Route: 048
  7. TARDYFERON [Concomitant]
     Route: 048
  8. MOVICOL [Concomitant]
     Route: 048
  9. MOVICOL [Concomitant]
     Route: 048
  10. MOVICOL [Concomitant]
     Route: 048
  11. MOVICOL [Concomitant]
     Route: 048
  12. MOPRAL [Concomitant]
     Route: 048

REACTIONS (10)
  - ABASIA [None]
  - ASTHENIA [None]
  - DEMENTIA [None]
  - DEPRESSED LEVEL OF CONSCIOUSNESS [None]
  - DISORIENTATION [None]
  - FALL [None]
  - GENERAL PHYSICAL HEALTH DETERIORATION [None]
  - RENAL IMPAIRMENT [None]
  - RIB FRACTURE [None]
  - SOMNOLENCE [None]
